FAERS Safety Report 22963288 (Version 2)
Quarter: 2023Q4

REPORT INFORMATION
  Report Type: Spontaneous
  Country: US (occurrence: US)
  Receive Date: 20230920
  Receipt Date: 20231003
  Transmission Date: 20240109
  Serious: No
  Sender: FDA-Public Use
  Company Number: US-BEH-2023163397

PATIENT
  Age: 64 Year
  Sex: Female

DRUGS (2)
  1. HIZENTRA [Suspect]
     Active Substance: HUMAN IMMUNOGLOBULIN G
     Indication: Humoral immune defect
     Dosage: 8 GRAM, QW
     Route: 058
     Dates: start: 202308
  2. HIZENTRA [Suspect]
     Active Substance: HUMAN IMMUNOGLOBULIN G
     Indication: Combined immunodeficiency

REACTIONS (3)
  - Diarrhoea [Unknown]
  - Muscle spasms [Unknown]
  - Petechiae [Unknown]

NARRATIVE: CASE EVENT DATE: 20230901
